FAERS Safety Report 8363072-8 (Version None)
Quarter: 2012Q2

REPORT INFORMATION
  Report Type: 
  Country: None (occurrence: None)
  Receive Date: 20120514
  Receipt Date: 20120514
  Transmission Date: 20120825
  Serious: Yes (Death, Hospitalization)
  Sender: FDA-Public Use
  Company Number: None

PATIENT
  Age: 77 Year
  Sex: Male
  Weight: 79.3 kg

DRUGS (1)
  1. PRADAXA [Suspect]
     Indication: ATRIAL FIBRILLATION
     Dosage: 150 MG BID PO, UNLIKELY - MONTHS ;  75 MG BID PO A FEW DAYS PRIOR
     Route: 048

REACTIONS (8)
  - HAEMATEMESIS [None]
  - GASTROINTESTINAL MUCOSAL DISORDER [None]
  - HAEMORRHAGE [None]
  - HAEMATOCHEZIA [None]
  - HYPOTENSION [None]
  - CONSTIPATION [None]
  - DIALYSIS [None]
  - COAGULOPATHY [None]
